FAERS Safety Report 7837021-2 (Version None)
Quarter: 2011Q4

REPORT INFORMATION
  Report Type: 
  Country: None (occurrence: None)
  Receive Date: 20111024
  Receipt Date: 20110803
  Transmission Date: 20120403
  Serious: No
  Sender: FDA-Public Use
  Company Number: US-ABBOTT-11P-163-0844081-00

PATIENT
  Sex: Female
  Weight: 52.21 kg

DRUGS (3)
  1. EFFEXOR [Concomitant]
     Indication: DEPRESSION
  2. LUPRON DEPOT [Suspect]
     Indication: ENDOMETRIOSIS
     Route: 030
     Dates: start: 20110613
  3. AYGESTIN [Concomitant]
     Indication: BACK DISORDER
     Dates: start: 20110601

REACTIONS (1)
  - VAGINAL DISCHARGE [None]
